FAERS Safety Report 8106706-5 (Version None)
Quarter: 2012Q1

REPORT INFORMATION
  Report Type: 
  Country: None (occurrence: None)
  Receive Date: 20120202
  Receipt Date: 20120131
  Transmission Date: 20120608
  Serious: No
  Sender: FDA-Public Use
  Company Number: US-BAYER-2012-010230

PATIENT
  Sex: Male
  Weight: 88.435 kg

DRUGS (1)
  1. MAGNEVIST [Suspect]
     Dosage: 20 ML, ONCE
     Route: 042

REACTIONS (3)
  - BACK PAIN [None]
  - RETCHING [None]
  - NAUSEA [None]
